FAERS Safety Report 16482280 (Version 1)
Quarter: 2019Q2

REPORT INFORMATION
  Report Type: Report from Study
  Country: IT (occurrence: IT)
  Receive Date: 20190627
  Receipt Date: 20190627
  Transmission Date: 20190711
  Serious: Yes (Hospitalization)
  Sender: FDA-Public Use
  Company Number: IT-TEVA-2019-IT-1069671

PATIENT
  Age: 93 Year
  Sex: Female

DRUGS (2)
  1. HALOPERIDOL. [Concomitant]
     Active Substance: HALOPERIDOL
  2. ZOLPIDEM TARTRATE. [Suspect]
     Active Substance: ZOLPIDEM TARTRATE
     Indication: OVERDOSE
     Route: 048
     Dates: start: 20190404, end: 20190404

REACTIONS (2)
  - Sopor [Recovered/Resolved]
  - Poisoning [Recovered/Resolved]

NARRATIVE: CASE EVENT DATE: 20190405
